FAERS Safety Report 7298244-7 (Version None)
Quarter: 2011Q1

REPORT INFORMATION
  Report Type: 
  Country: None (occurrence: None)
  Receive Date: 20110217
  Receipt Date: 20101217
  Transmission Date: 20110831
  Serious: Yes (Other)
  Sender: FDA-Public Use
  Company Number: US-BAYER-201023064NA

PATIENT
  Sex: Female

DRUGS (2)
  1. YAZ [Suspect]
     Route: 048
     Dates: start: 20020901, end: 20070301
  2. YASMIN [Suspect]
     Route: 048
     Dates: start: 20020901, end: 20070301

REACTIONS (1)
  - DEEP VEIN THROMBOSIS [None]
